FAERS Safety Report 5204558-4 (Version None)
Quarter: 2007Q1

REPORT INFORMATION
  Report Type: 
  Country: None (occurrence: None)
  Receive Date: 20070110
  Receipt Date: 20060622
  Transmission Date: 20070707
  Serious: Yes (Other)
  Sender: FDA-Public Use
  Company Number: US-BRISTOL-MYERS SQUIBB COMPANY-13370382

PATIENT
  Age: 43 Year
  Sex: Male
  Weight: 68 kg

DRUGS (6)
  1. ABILIFY [Suspect]
     Indication: AGITATION
     Dosage: DURATION OF THERAPY:  1.5 TO 2 YEARS
     Route: 048
     Dates: start: 20041001
  2. LEXAPRO [Suspect]
     Route: 048
     Dates: start: 20041001
  3. KEPPRA [Suspect]
     Route: 048
     Dates: start: 20030101
  4. CARBATROL [Concomitant]
  5. VITAMINS [Concomitant]
  6. TEGRETOL [Concomitant]

REACTIONS (7)
  - AGITATION [None]
  - AMNESIA [None]
  - COMMUNICATION DISORDER [None]
  - DEPRESSION [None]
  - DRUG INTERACTION [None]
  - LETHARGY [None]
  - SOMNOLENCE [None]
